FAERS Safety Report 6818015-2 (Version None)
Quarter: 2010Q3

REPORT INFORMATION
  Report Type: 
  Country: None (occurrence: None)
  Receive Date: 20100706
  Receipt Date: 20100628
  Transmission Date: 20110219
  Serious: Yes (Hospitalization)
  Sender: FDA-Public Use
  Company Number: NL-B.I. PHARMACEUTICALS,INC./RIDGEFIELD-2010-NL-00330NL

PATIENT
  Age: 40 Year
  Sex: Female

DRUGS (4)
  1. ATROVENT [Suspect]
     Indication: EMPHYSEMA
     Dosage: DOSE INCREASED ON AN UNSPECIFIED DATE
     Dates: start: 19940101
  2. SEREVENT [Concomitant]
     Indication: EMPHYSEMA
     Dosage: DOSE INCREASED ON AN UNSPECIFIED DATE
     Dates: start: 19940101
  3. PULMICORT [Concomitant]
     Indication: EMPHYSEMA
     Dosage: DOSE INCREASED ON AN UNSPECIFIED DATE
     Dates: start: 19940101
  4. FLUIMUCIL [Concomitant]
     Indication: EMPHYSEMA
     Dosage: DOSE INCREASED ON AN UNSPECIFIED DATE
     Dates: start: 19940101

REACTIONS (14)
  - ANXIETY [None]
  - BACTERIAL TEST POSITIVE [None]
  - CHEST DISCOMFORT [None]
  - DEPRESSION [None]
  - DISEASE PROGRESSION [None]
  - DIVORCED [None]
  - FEAR OF ANIMALS [None]
  - GAIT DISTURBANCE [None]
  - HOSPITALISATION [None]
  - MALAISE [None]
  - NOCTURNAL FEAR [None]
  - PULMONARY FUNCTION TEST DECREASED [None]
  - SOCIAL FEAR [None]
  - TUBERCULOSIS [None]
